FAERS Safety Report 11726806 (Version 2)
Quarter: 2015Q4

REPORT INFORMATION
  Report Type: Report from Study
  Country: US (occurrence: US)
  Receive Date: 20151112
  Receipt Date: 20151113
  Transmission Date: 20160304
  Serious: Yes (Death, Hospitalization, Other)
  Sender: FDA-Public Use
  Company Number: US-GILEAD-2015-0181885

PATIENT
  Age: 68 Year
  Sex: Female

DRUGS (3)
  1. REMODULIN [Concomitant]
     Active Substance: TREPROSTINIL
  2. AMBRISENTAN [Suspect]
     Active Substance: AMBRISENTAN
     Indication: PRODUCT USED FOR UNKNOWN INDICATION
     Dosage: 10 MG, QD
     Route: 065
     Dates: start: 20080611
  3. ORENITRAM [Concomitant]
     Active Substance: TREPROSTINIL

REACTIONS (1)
  - Death [Fatal]

NARRATIVE: CASE EVENT DATE: 20151105
